FAERS Safety Report 4710059-X (Version None)
Quarter: 2005Q3

REPORT INFORMATION
  Report Type: 
  Country: None (occurrence: None)
  Receive Date: 20050706
  Receipt Date: 20050624
  Transmission Date: 20060218
  Serious: Yes (Hospitalization)
  Sender: FDA-Public Use
  Company Number: 2005093186

PATIENT
  Age: 60 Year
  Sex: Male

DRUGS (1)
  1. FRAGMIN [Suspect]
     Indication: SURGERY
     Dosage: 5000 I.U. (2500 I.U., 2 IN 1 D), SUBCUTANEOUS
     Route: 058
     Dates: start: 20050611

REACTIONS (1)
  - EMBOLISM [None]
